FAERS Safety Report 5073546-3 (Version None)
Quarter: 2006Q3

REPORT INFORMATION
  Report Type: 
  Country: None (occurrence: None)
  Receive Date: 20060803
  Receipt Date: 20060714
  Transmission Date: 20061208
  Serious: Yes (Other)
  Sender: FDA-Public Use
  Company Number: 805#1#2006-00086

PATIENT
  Age: 82 Year
  Sex: Female

DRUGS (2)
  1. ALPROSTADIL [Suspect]
     Dosage: 40 MCG (40 MCG 1 IN 1 DAY(S))
     Dates: start: 20060626, end: 20060626
  2. RALOXIFENE HCL [Concomitant]

REACTIONS (6)
  - BLOOD CREATININE DECREASED [None]
  - BLOOD UREA DECREASED [None]
  - DEPRESSED LEVEL OF CONSCIOUSNESS [None]
  - HYPONATRAEMIA [None]
  - PNEUMONIA ASPIRATION [None]
  - SEPSIS [None]
